FAERS Safety Report 9541448 (Version 1)
Quarter: 2013Q3

REPORT INFORMATION
  Report Type: Spontaneous
  Country: US (occurrence: None)
  Receive Date: 20130919
  Receipt Date: 20130919
  Transmission Date: 20140515
  Serious: Yes (Life-Threatening)
  Sender: FDA-Public Use
  Company Number: None

PATIENT
  Sex: Female
  Weight: 120.66 kg

DRUGS (1)
  1. SMZ-TMP [Suspect]
     Indication: INNER EAR DISORDER
     Dosage: ONE TAB 2X DAY ORAL
     Route: 048

REACTIONS (10)
  - Swelling face [None]
  - Dizziness [None]
  - Anxiety [None]
  - Decreased appetite [None]
  - Asthenia [None]
  - Asthenia [None]
  - Insomnia [None]
  - Mood altered [None]
  - Diarrhoea [None]
  - Headache [None]
